FAERS Safety Report 15539301 (Version 1)
Quarter: 2018Q4

REPORT INFORMATION
  Report Type: Spontaneous
  Country: DK (occurrence: DK)
  Receive Date: 20181022
  Receipt Date: 20181022
  Transmission Date: 20190205
  Serious: Yes (Hospitalization)
  Sender: FDA-Public Use
  Company Number: PHHY2018DK130632

PATIENT
  Age: 61 Year
  Sex: Female
  Weight: 76 kg

DRUGS (15)
  1. CALCIUM-SANDOZ [Concomitant]
     Active Substance: CALCIUM
     Indication: MINERAL SUPPLEMENTATION
     Dosage: 500 MG, UNK
     Route: 048
     Dates: start: 20180824
  2. STILNOCT [Concomitant]
     Active Substance: ZOLPIDEM TARTRATE
     Indication: SLEEP DISORDER
     Dosage: 10 MG, QD
     Route: 048
     Dates: start: 2013
  3. LYRICA [Concomitant]
     Active Substance: PREGABALIN
     Indication: ANXIETY
     Dosage: 600 MG, QD
     Route: 048
     Dates: start: 2014
  4. MOTILIUM [Concomitant]
     Active Substance: DOMPERIDONE
     Indication: NAUSEA
     Dosage: 30 MG, QD
     Route: 048
     Dates: start: 201704
  5. KISQALI [Suspect]
     Active Substance: RIBOCICLIB
     Indication: BREAST CANCER METASTATIC
     Dosage: 3 DF, QD
     Route: 048
     Dates: start: 20180711, end: 20181003
  6. CIRCADIN [Concomitant]
     Active Substance: MELATONIN
     Indication: SLEEP DISORDER
     Dosage: 3 DF, Q12H
     Route: 048
  7. PINEX (ACETAMINOPHEN) [Concomitant]
     Active Substance: ACETAMINOPHEN
     Indication: PAIN
     Dosage: 4000 MG, QD
     Route: 048
     Dates: start: 2014
  8. OXAPAX [Concomitant]
     Active Substance: OXAZEPAM
     Indication: RESTLESSNESS
     Dosage: 45 MG, QD
     Route: 048
     Dates: start: 2012
  9. LETROZOL ORION [Concomitant]
     Indication: BREAST CANCER METASTATIC
     Dosage: 2.5 MG, QD
     Route: 048
     Dates: start: 20180711
  10. CYMBALTA [Concomitant]
     Active Substance: DULOXETINE HYDROCHLORIDE
     Indication: ANXIETY
     Dosage: 60 MG, QD
     Route: 048
     Dates: start: 20180625
  11. PETHIDINE ^DAK^ [Concomitant]
     Indication: PAIN
     Dosage: 100 MG, UNK
     Route: 048
     Dates: start: 2016
  12. UNIKALK BASIC [Concomitant]
     Indication: VITAMIN SUPPLEMENTATION
     Dosage: 3 ?G/L, QD
     Route: 048
     Dates: start: 2014
  13. IBANDRONAT STADA [Concomitant]
     Indication: METASTASES TO BONE
     Dosage: 50 MG, QD
     Route: 048
     Dates: start: 20180711
  14. ANTISTINA-PRIVIN [Concomitant]
     Indication: EYE ALLERGY
     Dosage: UNK
     Route: 050
  15. METADON DAK [Concomitant]
     Active Substance: METHADONE HYDROCHLORIDE
     Indication: PAIN
     Dosage: 30 MG, QD
     Route: 048
     Dates: start: 20180731

REACTIONS (1)
  - Electrocardiogram T wave inversion [Recovering/Resolving]

NARRATIVE: CASE EVENT DATE: 20180911
